FAERS Safety Report 24667165 (Version 1)
Quarter: 2024Q4

REPORT INFORMATION
  Report Type: Spontaneous
  Country: GB (occurrence: GB)
  Receive Date: 20241126
  Receipt Date: 20241126
  Transmission Date: 20250115
  Serious: Yes (Other)
  Sender: ASTELLAS
  Company Number: None

PATIENT
  Age: 75 Year

DRUGS (31)
  1. MIRABEGRON [Suspect]
     Active Substance: MIRABEGRON
     Indication: Product used for unknown indication
     Dosage: 25 MG TABLETS ONE TO BE TAKEN EACH DAY - OM - HELD
     Route: 065
  2. ETORICOXIB [Suspect]
     Active Substance: ETORICOXIB
     Indication: Product used for unknown indication
     Dosage: 90 MG TABLETS 1 TO BE TAKEN DAILY IF NEEDED - DAILY -HELD
     Route: 065
  3. NEFOPAM [Concomitant]
     Active Substance: NEFOPAM
     Indication: Product used for unknown indication
     Dosage: 30 MG TABLETS TWO TO BE TAKEN THREE TIMES A DAY - 2 OM, THEN CAN TAKE MORE IF NEEDED
     Route: 065
  4. SERTRALINE [Concomitant]
     Active Substance: SERTRALINE HYDROCHLORIDE
     Indication: Product used for unknown indication
     Dosage: TWO TO BE TAKEN DAILY - OM 16-JUL-2024
     Route: 065
     Dates: start: 20240716
  5. Paracetamol + Dihydrocodeine [Concomitant]
     Indication: Product used for unknown indication
     Route: 065
  6. Ibuprofen + Codeine [Concomitant]
     Indication: Product used for unknown indication
     Route: 065
  7. DOXAZOSIN [Concomitant]
     Active Substance: DOXAZOSIN\DOXAZOSIN MESYLATE
     Indication: Product used for unknown indication
     Dosage: 8 MG TABLETS ONE TO BE TAKEN ONCE DAILY 7 TABLET 10-JUL-2024
     Route: 065
     Dates: start: 20240710
  8. DOXAZOSIN [Concomitant]
     Active Substance: DOXAZOSIN\DOXAZOSIN MESYLATE
     Dosage: ONE TO BE TAKEN ONCE DAILY - INCREASED RECENTLY - OM 30-JUL-2024
     Route: 065
     Dates: start: 20240730
  9. CHLORHEXIDINE GLUCONATE [Concomitant]
     Active Substance: CHLORHEXIDINE GLUCONATE
     Indication: Product used for unknown indication
     Dosage: 0.2% MOUTHWASH USE MOUTHWASH FOUR TIMES A DAY 300 ML 08-JUL-2024
     Route: 065
     Dates: start: 20240708
  10. CEPHALEXIN [Concomitant]
     Active Substance: CEPHALEXIN
     Indication: Product used for unknown indication
     Dosage: CEFALEXIN 250 MG CAPSULES ONE CAPSULE TO BE TAKEN DAILY AT NIGHT - ON
     Route: 065
  11. Aspirin + Codeine [Concomitant]
     Indication: Product used for unknown indication
     Route: 065
  12. Terpin + Codeine [Concomitant]
     Indication: Product used for unknown indication
     Route: 065
  13. Terpin + Codeine [Concomitant]
     Indication: Product used for unknown indication
     Route: 065
  14. Guaiacol + Codeine [Concomitant]
     Indication: Product used for unknown indication
     Route: 065
  15. DIHYDROCODEINE [Concomitant]
     Active Substance: DIHYDROCODEINE
     Indication: Product used for unknown indication
     Route: 065
  16. CHOLECALCIFEROL [Concomitant]
     Active Substance: CHOLECALCIFEROL
     Indication: Product used for unknown indication
     Dosage: 800 UNIT CAPSULES ONE TO BE TAKEN EACH DAY - NO LONGER TAKING, STATES WAS A 12 WEEK COURSE
     Route: 065
  17. RAMIPRIL [Concomitant]
     Active Substance: RAMIPRIL
     Indication: Product used for unknown indication
     Dosage: 2.5 MG CAPSULES ONE TO BE TAKEN EACH DAY ON - INCREASED
     Route: 065
  18. ACETAMINOPHEN [Concomitant]
     Active Substance: ACETAMINOPHEN
     Indication: Product used for unknown indication
     Dosage: PARACETAMOL 500 MG TABLETS 1-2 UPTO QDS PRN - 2 QDS REGULAR
     Route: 065
  19. OMEPRAZOLE [Concomitant]
     Active Substance: OMEPRAZOLE
     Indication: Product used for unknown indication
     Dosage: OMEPRAZOLE 20 MG GASTRO-RESISTANT CAPSULES ONE TO BE TAKEN TWICE A DAY -TAKES 40MG OM
     Route: 065
  20. METFORMIN [Concomitant]
     Active Substance: METFORMIN HYDROCHLORIDE
     Indication: Product used for unknown indication
     Dosage: METFORMIN 500 MG TABLETS TWO TO BE TAKEN TWICE A DAY WITH MEALS
     Route: 065
  21. METFORMIN [Concomitant]
     Active Substance: METFORMIN HYDROCHLORIDE
     Dosage: PATIENT STATES REDUCED TO 1 BD PRE-ADMISSION - TO REMAIN ON 1G BD AS PER CONSULTANT 17-JAN-2024
     Route: 065
     Dates: start: 20240117
  22. ROSUVASTATIN [Concomitant]
     Active Substance: ROSUVASTATIN
     Indication: Product used for unknown indication
     Dosage: ROSUVASTATIN 5 MG TABLETS 1 NOCTE ON
     Route: 065
  23. CODEINE [Concomitant]
     Active Substance: CODEINE
     Indication: Product used for unknown indication
     Dosage: CODEINE 30 MG TABLETS ONE OR TWO TO BE TAKEN EVERY SIX HOURS WHEN NECESSARY. MAXIMUM 8 IN 24 HOURS -
     Route: 065
  24. DOXYCYCLINE [Concomitant]
     Active Substance: DOXYCYCLINE
     Indication: Product used for unknown indication
     Dosage: DOXYCYCLINE 100 MG CAPSULES TWO TO BE TAKEN ON THE FIRST DAY THEN ONE TO BE TAKEN EACH DAY 8 CAPSULE
     Route: 065
     Dates: start: 20240604
  25. FENTANYL [Concomitant]
     Active Substance: FENTANYL
     Indication: Product used for unknown indication
     Dosage: MATRIFEN 12 MICROGRAMS / HOUR TRANSDERMAL PATCHES ONE PATCH TO BE APPLIED EVERY 72 HOURS
     Route: 065
  26. FENTANYL [Concomitant]
     Active Substance: FENTANYL
     Dosage: CHANGE TOMORROW (20TH AUGUST) MATRIFEN 25 MICROGRAMS / HOUR TRANSDERMAL PATCHES ONE PATCH TO BE APPL
     Route: 065
     Dates: start: 20240627
  27. CALCIUM CARBONATE\CHOLECALCIFEROL [Concomitant]
     Active Substance: CALCIUM CARBONATE\CHOLECALCIFEROL
     Indication: Product used for unknown indication
     Dosage: ADCAL-D3 DISSOLVE 1500 MG / 400 UNIT EFFERVESCENT TABLETS 1 DAILY - OD
     Route: 065
  28. SENNA [Concomitant]
     Active Substance: SENNA LEAF\SENNOSIDES\SENNOSIDES A AND B
     Indication: Product used for unknown indication
     Dosage: SENNA 7.5 MG TABLETS TWO TO BE TAKEN AT NIGHT - PRN ONLY (RARELY) ACUTES 06-AUG-2024
     Route: 065
     Dates: start: 20240806
  29. MORPHINE SULFATE [Concomitant]
     Active Substance: MORPHINE SULFATE
     Indication: Product used for unknown indication
     Dosage: ORAMORPH 10 MG / 5 ML ORAL SOLUTION 2.5 ML TO 5 ML EVERY 4-6 HOURS FOR BREAKTHROUGH PAIN 100 ML
     Route: 065
     Dates: start: 20240520
  30. FERROUS FUMARATE [Concomitant]
     Active Substance: FERROUS FUMARATE
     Indication: Product used for unknown indication
     Dosage: 210 MG TABLETS ONE TO BE TAKEN EACH DAY - COURSE COMPLETED 03-NOV-2023
     Route: 065
     Dates: end: 20231103
  31. SPIKEVAX XBB.1.5 [Concomitant]
     Indication: COVID-19
     Dosage: 0.1 MG / 1 ML DISPERSION FOR INJECTION MULTIDOSE VIALS 0.50 ML INTRAMUSCULAR ROUTE (QUALIFIER VALUE)
     Route: 030

REACTIONS (1)
  - Malignant hypertension [Unknown]
